FAERS Safety Report 7916893-7 (Version None)
Quarter: 2011Q4

REPORT INFORMATION
  Report Type: 
  Country: None (occurrence: None)
  Receive Date: 20111116
  Receipt Date: 20111109
  Transmission Date: 20120403
  Serious: Yes (Hospitalization, Other)
  Sender: FDA-Public Use
  Company Number: US-JNJFOC-20111104632

PATIENT
  Sex: Male
  Weight: 77.11 kg

DRUGS (10)
  1. WARFARIN SODIUM [Concomitant]
     Indication: CARDIAC DISORDER
     Route: 065
  2. CARVEDILOL [Concomitant]
     Indication: CARDIAC DISORDER
     Route: 065
  3. LEVAQUIN [Suspect]
     Indication: CHEST WALL ABSCESS
     Route: 065
     Dates: start: 20110901
  4. DONEPEZIL HYDROCHLORIDE [Concomitant]
     Indication: DEMENTIA
     Route: 065
  5. VITAMINS NOS [Concomitant]
     Indication: VITAMIN SUPPLEMENTATION
     Route: 065
  6. ZEMPLAR [Suspect]
     Indication: RENAL FAILURE
     Route: 065
     Dates: start: 20090101
  7. NICOTINIC ACID [Concomitant]
     Route: 065
  8. ATORVASTATIN CALCIUM [Concomitant]
     Indication: BLOOD CHOLESTEROL INCREASED
     Route: 065
  9. SODIUM BICARBONATE [Concomitant]
     Indication: RENAL DISORDER
     Route: 065
  10. DARBEPOETIN ALFA [Concomitant]
     Indication: ANAEMIA
     Route: 065

REACTIONS (2)
  - BLOOD CREATININE INCREASED [None]
  - HAEMOGLOBIN DECREASED [None]
